FAERS Safety Report 6394429-2 (Version None)
Quarter: 2009Q4

REPORT INFORMATION
  Report Type: 
  Country: None (occurrence: None)
  Receive Date: 20091009
  Receipt Date: 20090929
  Transmission Date: 20100525
  Serious: Yes (Hospitalization)
  Sender: FDA-Public Use
  Company Number: US-BIOGENIDEC-2009BI019934

PATIENT
  Age: 28 Year
  Sex: Female

DRUGS (2)
  1. TYSABRI [Suspect]
     Indication: MULTIPLE SCLEROSIS
     Route: 042
     Dates: start: 20080911, end: 20080911
  2. TYSABRI [Suspect]
     Route: 042
     Dates: start: 20090507

REACTIONS (13)
  - BLOOD PRESSURE INCREASED [None]
  - DEPRESSION [None]
  - DEVICE RELATED INFECTION [None]
  - FALL [None]
  - FATIGUE [None]
  - HEART RATE INCREASED [None]
  - LOSS OF CONTROL OF LEGS [None]
  - MEDICAL DEVICE COMPLICATION [None]
  - PROCEDURAL COMPLICATION [None]
  - STAPHYLOCOCCAL INFECTION [None]
  - THROMBOSIS IN DEVICE [None]
  - URINARY INCONTINENCE [None]
  - WEIGHT INCREASED [None]
